FAERS Safety Report 7434788-2 (Version None)
Quarter: 2011Q2

REPORT INFORMATION
  Report Type: 
  Country: None (occurrence: None)
  Receive Date: 20110425
  Receipt Date: 20110419
  Transmission Date: 20111010
  Serious: Yes (Hospitalization)
  Sender: FDA-Public Use
  Company Number: FR-PFIZER INC-2011084974

PATIENT
  Age: 77 Year
  Sex: Female

DRUGS (5)
  1. SOLU-MEDROL [Suspect]
     Indication: PREMEDICATION
     Dosage: 80 MG, SINGLE
     Route: 042
     Dates: start: 20110217, end: 20110217
  2. PACLITAXEL [Suspect]
     Dosage: 112 MG, SINGLE (2ND COURSE)
     Route: 042
     Dates: start: 20110217, end: 20110217
  3. POLARAMINE [Suspect]
     Indication: PREMEDICATION
     Dosage: 2 MG, SINGLE
     Route: 048
     Dates: start: 20110217, end: 20110217
  4. PACLITAXEL [Suspect]
     Indication: BREAST CANCER METASTATIC
     Dosage: 1ST COURSE
  5. ZANTAC [Suspect]
     Indication: PREMEDICATION
     Dosage: 50 MG, SINGLE
     Route: 042
     Dates: start: 20110217, end: 20110217

REACTIONS (1)
  - SYNCOPE [None]
